FAERS Safety Report 16308543 (Version 1)
Quarter: 2019Q2

REPORT INFORMATION
  Report Type: Spontaneous
  Country: US (occurrence: US)
  Receive Date: 20190514
  Receipt Date: 20190514
  Transmission Date: 20190711
  Serious: Yes (Other)
  Sender: FDA-Public Use
  Company Number: US-ASTRAZENECA-2019SE71705

PATIENT
  Sex: Male

DRUGS (4)
  1. BYETTA [Suspect]
     Active Substance: EXENATIDE
     Route: 065
  2. BYDUREON [Suspect]
     Active Substance: EXENATIDE
     Dosage: 2
     Route: 065
  3. TRULICITY [Concomitant]
     Active Substance: DULAGLUTIDE
  4. ALBIGLUTIDE [Concomitant]
     Active Substance: ALBIGLUTIDE

REACTIONS (1)
  - Pancreatic carcinoma [Unknown]
